FAERS Safety Report 9497226 (Version 2)
Quarter: 2014Q2

REPORT INFORMATION
  Report Type: Report from Study
  Country: US (occurrence: US)
  Receive Date: 20130904
  Receipt Date: 20140425
  Transmission Date: 20141212
  Serious: No
  Sender: FDA-Public Use
  Company Number: PHEH2013US018500

PATIENT
  Age: 32 Year
  Sex: Male

DRUGS (2)
  1. TASIGNA [Suspect]
     Indication: LEUKAEMIA
     Dosage: 200 MG, BID
     Route: 048
     Dates: start: 20120608
  2. TASIGNA [Suspect]
     Dosage: 200 MG, QD
     Route: 048

REACTIONS (1)
  - Food interaction [Not Recovered/Not Resolved]
